FAERS Safety Report 7310915-2 (Version None)
Quarter: 2011Q1

REPORT INFORMATION
  Report Type: 
  Country: None (occurrence: None)
  Receive Date: 20110224
  Receipt Date: 20110216
  Transmission Date: 20110831
  Serious: Yes (Other)
  Sender: FDA-Public Use
  Company Number: US-JNJFOC-20100600791

PATIENT
  Sex: Female

DRUGS (1)
  1. LEVAQUIN [Suspect]
     Indication: COUGH
     Route: 048

REACTIONS (4)
  - ANXIETY [None]
  - TENDON RUPTURE [None]
  - DEPRESSION [None]
  - ROTATOR CUFF SYNDROME [None]
